FAERS Safety Report 5541561-9 (Version None)
Quarter: 2007Q4

REPORT INFORMATION
  Report Type: 
  Country: None (occurrence: None)
  Receive Date: 20071210
  Receipt Date: 20071127
  Transmission Date: 20080405
  Serious: Yes (Hospitalization)
  Sender: FDA-Public Use
  Company Number: PHBS2007IT19955

PATIENT
  Age: 67 Year
  Sex: Male

DRUGS (2)
  1. CYCLOSPORINE [Suspect]
     Indication: RENAL TRANSPLANT
     Route: 065
  2. PREDNISONE [Concomitant]
     Indication: RENAL TRANSPLANT

REACTIONS (18)
  - ABDOMINAL MASS [None]
  - ABDOMINAL PAIN [None]
  - BLOOD ALKALINE PHOSPHATASE INCREASED [None]
  - BLOOD LACTATE DEHYDROGENASE INCREASED [None]
  - BONE MARROW NECROSIS [None]
  - BONE PAIN [None]
  - DIFFUSE LARGE B-CELL LYMPHOMA [None]
  - HEPATITIS C POSITIVE [None]
  - HYPERGAMMAGLOBULINAEMIA BENIGN MONOCLONAL [None]
  - LEUKOCYTOSIS [None]
  - LYMPHOPROLIFERATIVE DISORDER [None]
  - NEUTROPENIA [None]
  - NEUTROPHILIA [None]
  - NIGHT SWEATS [None]
  - NORMOCHROMIC NORMOCYTIC ANAEMIA [None]
  - PYREXIA [None]
  - THROMBOCYTOPENIA [None]
  - WEIGHT DECREASED [None]
